FAERS Safety Report 7282873-0 (Version None)
Quarter: 2011Q1

REPORT INFORMATION
  Report Type: 
  Country: None (occurrence: None)
  Receive Date: 20110128
  Receipt Date: 20110120
  Transmission Date: 20110831
  Serious: Yes (Death)
  Sender: FDA-Public Use
  Company Number: 1000018322

PATIENT
  Age: 62 Year
  Sex: Male

DRUGS (5)
  1. LORCET-HD [Suspect]
  2. LORCET-HD [Suspect]
  3. ETHANOL (ETHANOL) [Suspect]
  4. CLONIDINE [Suspect]
  5. DILTIAZEM (DILTIAZEM HYDROCHLORIDE) [Suspect]

REACTIONS (2)
  - COMPLETED SUICIDE [None]
  - MULTIPLE DRUG OVERDOSE INTENTIONAL [None]
